FAERS Safety Report 21834562 (Version 1)
Quarter: 2023Q1

REPORT INFORMATION
  Report Type: Spontaneous
  Country: US (occurrence: None)
  Receive Date: 20230108
  Receipt Date: 20230108
  Transmission Date: 20230417
  Serious: No
  Sender: FDA-Public Use
  Company Number: US-ROCHE-2999148

PATIENT
  Sex: Male
  Weight: 93.070 kg

DRUGS (2)
  1. HEMLIBRA [Suspect]
     Active Substance: EMICIZUMAB-KXWH
     Indication: Factor VII deficiency
     Dosage: CURRENT,  1.7 ML DOSE
     Route: 058
     Dates: start: 202002
  2. HEMLIBRA [Suspect]
     Active Substance: EMICIZUMAB-KXWH
     Indication: Factor VII deficiency
     Dosage: CURRENT, 1.7 ML DOSE
     Route: 058
     Dates: start: 202002

REACTIONS (4)
  - Hepatic pain [Unknown]
  - Pain [Unknown]
  - Palpitations [Unknown]
  - Intervertebral disc protrusion [Unknown]
